FAERS Safety Report 21548233 (Version 13)
Quarter: 2023Q1

REPORT INFORMATION
  Report Type: Report from Study
  Country: JP (occurrence: None)
  Receive Date: 20221103
  Receipt Date: 20230216
  Transmission Date: 20230417
  Serious: Yes (Hospitalization)
  Sender: FDA-Public Use
  Company Number: JP-Eisai Medical Research-EC-2022-127073

PATIENT
  Age: 30 Year
  Sex: Male
  Weight: 101.9 kg

DRUGS (12)
  1. LENVATINIB [Suspect]
     Active Substance: LENVATINIB
     Indication: Renal cell carcinoma
     Route: 048
     Dates: start: 20221013, end: 20221026
  2. LENVATINIB [Suspect]
     Active Substance: LENVATINIB
     Dosage: DOSE REDUCED
     Route: 048
     Dates: start: 20221124
  3. BELZUTIFAN [Suspect]
     Active Substance: BELZUTIFAN
     Indication: Renal cell carcinoma
     Route: 048
     Dates: start: 20221013, end: 20221026
  4. BELZUTIFAN [Suspect]
     Active Substance: BELZUTIFAN
     Dosage: DOSE REDUCED
     Route: 048
     Dates: start: 20221110
  5. BETAMETHASONE BUTYRATE PROPIONATE [Concomitant]
     Active Substance: BETAMETHASONE BUTYRATE PROPIONATE
     Dates: start: 201201
  6. HEPARINOID [Concomitant]
     Route: 061
     Dates: start: 202001
  7. CLINDAMYCIN [Concomitant]
     Active Substance: CLINDAMYCIN
     Dates: start: 20200801
  8. AZILSARTAN KAMEDOXOMIL [Concomitant]
     Active Substance: AZILSARTAN KAMEDOXOMIL
     Dates: start: 20210608
  9. CORTRIL [Concomitant]
     Active Substance: HYDROCORTISONE
     Dates: start: 20210611, end: 20221026
  10. LULICONAZOLE [Concomitant]
     Active Substance: LULICONAZOLE
     Dates: start: 20210911
  11. KETOCONAZOLE [Concomitant]
     Active Substance: KETOCONAZOLE
     Route: 061
     Dates: start: 20211005
  12. BETAMETHASONE VALERATE [Concomitant]
     Active Substance: BETAMETHASONE VALERATE
     Route: 061
     Dates: start: 20220920

REACTIONS (2)
  - Rash maculo-papular [Recovered/Resolved]
  - Platelet count decreased [Recovered/Resolved]

NARRATIVE: CASE EVENT DATE: 20221022
